FAERS Safety Report 6697224-X (Version None)
Quarter: 2010Q2

REPORT INFORMATION
  Report Type: 
  Country: None (occurrence: None)
  Receive Date: 20100426
  Receipt Date: 20100416
  Transmission Date: 20101027
  Serious: Yes (Death)
  Sender: FDA-Public Use
  Company Number: PL-PFIZER INC-2008074491

PATIENT
  Age: 71 Year
  Sex: Male
  Weight: 78 kg

DRUGS (6)
  1. IRINOTECAN HCL [Suspect]
     Indication: COLORECTAL CANCER
     Dosage: 349 MG, EVERY 2 WEEKS
     Dates: start: 20080407, end: 20080818
  2. SUNITINIB MALATE [Suspect]
     Indication: COLORECTAL CANCER
     Dosage: 37.5 MG, 1X/DAY
     Route: 048
     Dates: start: 20080407, end: 20080829
  3. FLUOROURACIL [Suspect]
     Indication: COLORECTAL CANCER
     Dosage: 1 EVERY 2 WEEKS
     Dates: start: 20080407, end: 20080820
  4. CALCIUM FOLINATE [Suspect]
     Indication: COLORECTAL CANCER
     Dosage: 1 EVERY 2 WEEKS
     Dates: start: 20080407, end: 20080818
  5. FENTANYL CITRATE [Suspect]
     Indication: PAIN
     Dosage: 25 UG
     Dates: start: 20080803
  6. KETOPROFEN [Concomitant]
     Indication: PAIN
     Dosage: 50 MG, 2X/DAY
     Dates: start: 20080801, end: 20080804

REACTIONS (1)
  - COLONIC OBSTRUCTION [None]
